FAERS Safety Report 11421297 (Version 1)
Quarter: 2015Q3

REPORT INFORMATION
  Report Type: Spontaneous
  Country: FR (occurrence: FR)
  Receive Date: 20150826
  Receipt Date: 20150826
  Transmission Date: 20151125
  Serious: Yes (Hospitalization, Other)
  Sender: FDA-Public Use
  Company Number: FR-BAXTER-2015BAX045348

PATIENT
  Age: 40 Year
  Sex: Female

DRUGS (24)
  1. ENDOXAN 1000 MG, POUDRE POUR SOLUTION INJECTABLE [Suspect]
     Active Substance: CYCLOPHOSPHAMIDE
     Indication: PLASMA CELL MYELOMA
     Dosage: 4 COURSES
     Route: 065
     Dates: start: 2000
  2. ADRIBLASTINE [Suspect]
     Active Substance: DOXORUBICIN
     Indication: METASTASES TO BREAST
     Dosage: 4 COURSES
     Route: 065
     Dates: start: 2000
  3. 5 FLUOROURACIL [Suspect]
     Active Substance: FLUOROURACIL
     Indication: BREAST CANCER
     Dosage: 4 COURSES
     Route: 065
     Dates: start: 1994
  4. DEXAMETHASONE. [Suspect]
     Active Substance: DEXAMETHASONE
     Dosage: 5 COURSES
     Route: 048
     Dates: start: 20130603, end: 20131018
  5. VELCADE [Suspect]
     Active Substance: BORTEZOMIB
     Dosage: 3 COURSES
     Route: 042
     Dates: start: 20121022, end: 20121203
  6. ENDOXAN 1000 MG, POUDRE POUR SOLUTION INJECTABLE [Suspect]
     Active Substance: CYCLOPHOSPHAMIDE
     Indication: BREAST CANCER
     Dosage: 4 COURSES
     Route: 065
     Dates: start: 1994
  7. ENDOXAN 1000 MG, POUDRE POUR SOLUTION INJECTABLE [Suspect]
     Active Substance: CYCLOPHOSPHAMIDE
     Indication: METASTASES TO BREAST
     Dosage: HIGH DOSE, ONE COURSE
     Route: 042
     Dates: start: 20120918
  8. VELCADE [Suspect]
     Active Substance: BORTEZOMIB
     Dosage: ONE COURSE
     Route: 042
     Dates: start: 20120828
  9. REVLIMID [Suspect]
     Active Substance: LENALIDOMIDE
     Dosage: 12 COURSES
     Route: 048
     Dates: start: 20131216, end: 20140710
  10. DEXAMETHASONE. [Suspect]
     Active Substance: DEXAMETHASONE
     Indication: PLASMA CELL MYELOMA
     Dosage: DAY 1, DAY 4, DAY 8, DAY 11
     Route: 065
     Dates: start: 20120712
  11. DEXAMETHASONE. [Suspect]
     Active Substance: DEXAMETHASONE
     Dosage: ONE COURSE
     Route: 065
     Dates: start: 20120807
  12. ENDOXAN 1000 MG, POUDRE POUR SOLUTION INJECTABLE [Suspect]
     Active Substance: CYCLOPHOSPHAMIDE
     Dosage: HIGH DOSE
     Route: 042
     Dates: start: 20130513
  13. ADRIBLASTINE [Suspect]
     Active Substance: DOXORUBICIN
     Indication: BREAST CANCER
     Dosage: 4 COURSES
     Route: 065
     Dates: start: 1994
  14. VELCADE [Suspect]
     Active Substance: BORTEZOMIB
     Indication: PLASMA CELL MYELOMA
     Dosage: DAY 1, DAY 4, DAY 8, DAY 11 (TOTAL 6 CYCLES)
     Route: 042
     Dates: start: 20120712
  15. VELCADE [Suspect]
     Active Substance: BORTEZOMIB
     Dosage: ONE COURSE
     Route: 042
     Dates: start: 20120807
  16. REVLIMID [Suspect]
     Active Substance: LENALIDOMIDE
     Indication: PLASMA CELL MYELOMA
     Dosage: 1 DOSAGE FORM IN 1 CYCLE AND TOTAL OF 17 COURSES
     Route: 048
     Dates: start: 20120828, end: 20120831
  17. DEXAMETHASONE. [Suspect]
     Active Substance: DEXAMETHASONE
     Dosage: 3 COURSES
     Route: 065
     Dates: start: 20121022, end: 20121203
  18. AREDIA [Concomitant]
     Active Substance: PAMIDRONATE DISODIUM
     Indication: PRODUCT USED FOR UNKNOWN INDICATION
     Route: 065
     Dates: start: 20140812
  19. GRANOCYTE [Concomitant]
     Active Substance: LENOGRASTIM
     Indication: PRODUCT USED FOR UNKNOWN INDICATION
     Route: 065
     Dates: start: 2012
  20. ENDOXAN 1000 MG, POUDRE POUR SOLUTION INJECTABLE [Suspect]
     Active Substance: CYCLOPHOSPHAMIDE
     Dosage: 3 COURSES
     Route: 042
     Dates: start: 20121022, end: 20121203
  21. REVLIMID [Suspect]
     Active Substance: LENALIDOMIDE
     Dosage: DAY 1 TO DAY 21, 5 COURSES
     Route: 048
     Dates: start: 20130603, end: 20131018
  22. LEVACT [Suspect]
     Active Substance: BENDAMUSTINE HYDROCHLORIDE
     Indication: PLASMA CELL MYELOMA
     Dosage: 4 COURSES ON DAY 1 AND 2
     Route: 042
     Dates: start: 20130128, end: 20130415
  23. DEXAMETHASONE. [Suspect]
     Active Substance: DEXAMETHASONE
     Dosage: ONE COURSE
     Route: 065
     Dates: start: 20120828
  24. DEXAMETHASONE. [Suspect]
     Active Substance: DEXAMETHASONE
     Dosage: 12 COURSES
     Route: 065
     Dates: start: 20131216, end: 20140710

REACTIONS (10)
  - Metastases to breast [Unknown]
  - Drug intolerance [Unknown]
  - Therapy responder [Unknown]
  - Metastases to liver [Unknown]
  - Pulmonary embolism [Unknown]
  - Metastases to skin [Unknown]
  - Rash [Recovered/Resolved]
  - Ovarian cancer metastatic [Not Recovered/Not Resolved]
  - Plasma cell myeloma [Unknown]
  - Monoclonal gammopathy [Unknown]

NARRATIVE: CASE EVENT DATE: 199410
